FAERS Safety Report 6225119-4 (Version None)
Quarter: 2009Q2

REPORT INFORMATION
  Report Type: 
  Country: None (occurrence: None)
  Receive Date: 20090612
  Receipt Date: 20090406
  Transmission Date: 20091009
  Serious: No
  Sender: FDA-Public Use
  Company Number: US-ABBOTT-09P-163-0566841-00

PATIENT
  Sex: Female
  Weight: 88.984 kg

DRUGS (1)
  1. HUMIRA [Suspect]
     Indication: RHEUMATOID ARTHRITIS
     Route: 058
     Dates: start: 20090316, end: 20090323

REACTIONS (2)
  - PRURITUS [None]
  - RASH ERYTHEMATOUS [None]
